FAERS Safety Report 6056080-3 (Version None)
Quarter: 2009Q1

REPORT INFORMATION
  Report Type: 
  Country: None (occurrence: None)
  Receive Date: 20090128
  Receipt Date: 20090119
  Transmission Date: 20090719
  Serious: Yes (Hospitalization, Other)
  Sender: FDA-Public Use
  Company Number: ES-GILEAD-E2B_00000268

PATIENT
  Age: 45 Year
  Sex: Female
  Weight: 52 kg

DRUGS (3)
  1. VIREAD [Suspect]
     Indication: HIV INFECTION
     Dosage: C/24H
     Route: 048
     Dates: start: 20080501, end: 20081001
  2. TRUVADA [Interacting]
     Indication: HIV INFECTION
     Dosage: C/24H
     Route: 048
     Dates: start: 20080501, end: 20081001
  3. KALETRA [Interacting]
     Indication: HIV INFECTION
     Dosage: C/24H
     Route: 048
     Dates: start: 20050201

REACTIONS (2)
  - FANCONI SYNDROME ACQUIRED [None]
  - OVERDOSE [None]
